FAERS Safety Report 11411432 (Version 1)
Quarter: 2015Q3

REPORT INFORMATION
  Report Type: Spontaneous
  Country: US (occurrence: US)
  Receive Date: 20150821
  Receipt Date: 20150821
  Transmission Date: 20151125
  Serious: No
  Sender: FDA-Public Use
  Company Number: US-ELI_LILLY_AND_COMPANY-US201007002689

PATIENT
  Age: 58 Year
  Sex: Female

DRUGS (6)
  1. HUMULIN N [Suspect]
     Active Substance: INSULIN HUMAN
     Dosage: 23 U, EACH EVENING
     Dates: start: 20100515
  2. HUMULIN N [Suspect]
     Active Substance: INSULIN HUMAN
     Dosage: 23 U, EACH EVENING
     Dates: start: 20100515
  3. HUMULIN N [Suspect]
     Active Substance: INSULIN HUMAN
     Indication: TYPE 1 DIABETES MELLITUS
     Dosage: 33 U, EACH MORNING
  4. HUMULIN N [Suspect]
     Active Substance: INSULIN HUMAN
     Dosage: 33 U, EACH MORNING
  5. HUMULIN N [Suspect]
     Active Substance: INSULIN HUMAN
     Dosage: 23 U, EACH EVENING
     Dates: start: 20100515
  6. HUMULIN N [Suspect]
     Active Substance: INSULIN HUMAN
     Dosage: 33 U, EACH MORNING

REACTIONS (1)
  - Feeling abnormal [Recovered/Resolved]

NARRATIVE: CASE EVENT DATE: 20100515
